FAERS Safety Report 6710075-2 (Version None)
Quarter: 2010Q2

REPORT INFORMATION
  Report Type: 
  Country: None (occurrence: None)
  Receive Date: 20100504
  Receipt Date: 20100422
  Transmission Date: 20101027
  Serious: Yes (Other)
  Sender: FDA-Public Use
  Company Number: TR-ELI_LILLY_AND_COMPANY-TR201004006589

PATIENT
  Sex: Female
  Weight: 2.8 kg

DRUGS (3)
  1. HUMULIN R [Suspect]
     Dosage: UNK UNK, UNKNOWN
     Route: 064
     Dates: end: 20100402
  2. HUMULIN N [Suspect]
     Dosage: UNK UNK, UNKNOWN
     Route: 064
     Dates: end: 20100402
  3. METHYLDOPA [Concomitant]
     Dosage: UNK UNK, DAILY (1/D)
     Route: 064
     Dates: end: 20100402

REACTIONS (3)
  - DRUG EXPOSURE DURING PREGNANCY [None]
  - PREMATURE BABY [None]
  - RENAL DISORDER [None]
